FAERS Safety Report 18277234 (Version 1)
Quarter: 2020Q3

REPORT INFORMATION
  Report Type: Spontaneous
  Country: US (occurrence: US)
  Receive Date: 20200917
  Receipt Date: 20200917
  Transmission Date: 20201103
  Serious: No
  Sender: FDA-Public Use
  Company Number: US-SHIRE-US202030187

PATIENT
  Sex: Male
  Weight: 83.9 kg

DRUGS (2)
  1. GAMMAGARD LIQUID [Suspect]
     Active Substance: HUMAN IMMUNOGLOBULIN G
     Dosage: 140 GRAM, 3 DAYS
     Route: 042
  2. GAMMAGARD LIQUID [Suspect]
     Active Substance: HUMAN IMMUNOGLOBULIN G
     Indication: POLYNEUROPATHY
     Dosage: 140 GRAM, 4 DAYS
     Route: 042

REACTIONS (7)
  - Chest pain [Unknown]
  - Hypersensitivity [Unknown]
  - Headache [Recovered/Resolved]
  - Fatigue [Unknown]
  - Arthralgia [Unknown]
  - Dizziness [Recovered/Resolved]
  - Myalgia [Unknown]
